FAERS Safety Report 17816739 (Version 1)
Quarter: 2020Q2

REPORT INFORMATION
  Report Type: Spontaneous
  Country: US (occurrence: US)
  Receive Date: 20200522
  Receipt Date: 20200522
  Transmission Date: 20200714
  Serious: Yes (Hospitalization)
  Sender: FDA-Public Use
  Company Number: US-FRESENIUS KABI-FK202004929

PATIENT
  Age: 68 Year
  Sex: Female

DRUGS (3)
  1. CARBOPLATIN (MANUFACTURER UNKNOWN) [Suspect]
     Active Substance: CARBOPLATIN
     Indication: ENDOMETRIAL CANCER STAGE III
     Route: 065
  2. TRASTUZUMAB. [Suspect]
     Active Substance: TRASTUZUMAB
     Indication: ENDOMETRIAL CANCER STAGE III
     Route: 065
  3. PACLITAXEL. [Suspect]
     Active Substance: PACLITAXEL
     Indication: ENDOMETRIAL CANCER STAGE III
     Route: 065

REACTIONS (2)
  - Tumour lysis syndrome [Unknown]
  - Renal tubular necrosis [Recovering/Resolving]
